FAERS Safety Report 7824025-9 (Version None)
Quarter: 2011Q4

REPORT INFORMATION
  Report Type: 
  Country: None (occurrence: None)
  Receive Date: 20111018
  Receipt Date: 20111018
  Transmission Date: 20120403
  Serious: Yes (Hospitalization)
  Sender: FDA-Public Use
  Company Number: None

PATIENT
  Sex: Female
  Weight: 56.9 kg

DRUGS (2)
  1. PEMETREXED [Suspect]
     Dosage: 810 MG
  2. CISPLATIN [Suspect]
     Dosage: 81 MG

REACTIONS (11)
  - HYPOCALCAEMIA [None]
  - REFUSAL OF TREATMENT BY PATIENT [None]
  - VAGINAL HAEMORRHAGE [None]
  - ANAEMIA [None]
  - HYPOKALAEMIA [None]
  - PLATELET COUNT INCREASED [None]
  - HEART RATE INCREASED [None]
  - BODY TEMPERATURE DECREASED [None]
  - TREATMENT NONCOMPLIANCE [None]
  - HYPOALBUMINAEMIA [None]
  - HYDRONEPHROSIS [None]
